FAERS Safety Report 10254054 (Version 1)
Quarter: 2014Q2

REPORT INFORMATION
  Report Type: Spontaneous
  Country: GB (occurrence: GB)
  Receive Date: 20140623
  Receipt Date: 20140623
  Transmission Date: 20141212
  Serious: Yes (Other)
  Sender: FDA-Public Use
  Company Number: GB-MYLANLABS-2014S1013881

PATIENT
  Age: 85 Year
  Sex: Female

DRUGS (6)
  1. ALENDRONIC ACID [Suspect]
     Indication: OSTEOPOROSIS
     Route: 048
     Dates: start: 20131106
  2. ASPIRIN [Concomitant]
  3. CALCIUM + VITAMIN D /01483701/ [Concomitant]
  4. GTN [Concomitant]
  5. METOPROLOL [Concomitant]
  6. SIMVASTATIN [Concomitant]

REACTIONS (5)
  - Dizziness [Unknown]
  - Nausea [Unknown]
  - Hyperhidrosis [Unknown]
  - Joint swelling [Unknown]
  - Malaise [Unknown]
